FAERS Safety Report 9571884 (Version 2)
Quarter: 2013Q4

REPORT INFORMATION
  Report Type: Report from Study
  Country: US (occurrence: AU)
  Receive Date: 20131001
  Receipt Date: 20131001
  Transmission Date: 20140711
  Serious: No
  Sender: FDA-Public Use
  Company Number: US-ABBVIE-11P-163-0883747-00

PATIENT
  Age: 35 Year
  Sex: Female

DRUGS (2)
  1. KALETRA TABLETS [Suspect]
     Indication: ANTIRETROVIRAL THERAPY
     Route: 048
     Dates: start: 20111125
  2. EPZICOM [Suspect]
     Indication: ANTIRETROVIRAL THERAPY
     Dates: start: 20111125

REACTIONS (3)
  - Liver function test abnormal [Unknown]
  - Pyonephrosis [Unknown]
  - Breech delivery [Unknown]
